FAERS Safety Report 13338164 (Version 1)
Quarter: 2017Q1

REPORT INFORMATION
  Report Type: Spontaneous
  Country: GB (occurrence: GB)
  Receive Date: 20170315
  Receipt Date: 20170315
  Transmission Date: 20170428
  Serious: Yes (Hospitalization)
  Sender: FDA-Public Use
  Company Number: GB-DRREDDYS-GER/UKI/17/0087692

PATIENT
  Age: 93 Year
  Sex: Female
  Weight: 48.4 kg

DRUGS (8)
  1. MEMANTIN [Suspect]
     Active Substance: MEMANTINE
     Indication: DEMENTIA ALZHEIMER^S TYPE
     Route: 048
     Dates: start: 20170131
  2. MEMANTIN [Suspect]
     Active Substance: MEMANTINE
     Route: 048
     Dates: end: 20170208
  3. FERROUS SULFATE. [Concomitant]
     Active Substance: FERROUS SULFATE
     Indication: PRODUCT USED FOR UNKNOWN INDICATION
     Dosage: IN THE MORNING.
  4. FOLIC ACID. [Concomitant]
     Active Substance: FOLIC ACID
     Indication: PRODUCT USED FOR UNKNOWN INDICATION
  5. FELODIPINE. [Concomitant]
     Active Substance: FELODIPINE
     Indication: PRODUCT USED FOR UNKNOWN INDICATION
     Dosage: IN THE MORNING.
  6. MIRTAZAPINE HYDROCHLORIDE [Concomitant]
     Active Substance: MIRTAZAPINE
     Indication: PRODUCT USED FOR UNKNOWN INDICATION
     Dosage: NOCTE.
  7. TERBINAFINE. [Concomitant]
     Active Substance: TERBINAFINE
     Indication: PRODUCT USED FOR UNKNOWN INDICATION
     Dosage: TWICE A DAY.
  8. CALCICHEW [Concomitant]
     Active Substance: CALCIUM CARBONATE
     Indication: PRODUCT USED FOR UNKNOWN INDICATION
     Dosage: TWICE A DAY.

REACTIONS (6)
  - Agitation [Recovering/Resolving]
  - Incontinence [Unknown]
  - Hallucination [Recovering/Resolving]
  - Diarrhoea [Recovering/Resolving]
  - Aggression [Recovering/Resolving]
  - Abnormal behaviour [Unknown]

NARRATIVE: CASE EVENT DATE: 20170131
